FAERS Safety Report 6646807-1 (Version None)
Quarter: 2010Q1

REPORT INFORMATION
  Report Type: 
  Country: None (occurrence: None)
  Receive Date: 20100323
  Receipt Date: 20100315
  Transmission Date: 20100710
  Serious: Yes (Life-Threatening, Hospitalization)
  Sender: FDA-Public Use
  Company Number: IN-BRISTOL-MYERS SQUIBB COMPANY-15017098

PATIENT
  Age: 71 Year
  Sex: Male
  Weight: 71 kg

DRUGS (2)
  1. ERBITUX [Suspect]
     Indication: COLORECTAL CANCER
     Route: 042
     Dates: start: 20100302, end: 20100302
  2. IRINOTECAN HCL [Concomitant]
     Indication: COLORECTAL CANCER
     Route: 042
     Dates: start: 20100302, end: 20100302

REACTIONS (1)
  - VENTRICULAR TACHYARRHYTHMIA [None]
